FAERS Safety Report 5081618-2 (Version None)
Quarter: 2006Q3

REPORT INFORMATION
  Report Type: 
  Country: None (occurrence: None)
  Receive Date: 20060810
  Receipt Date: 20060728
  Transmission Date: 20061208
  Serious: Yes (Other)
  Sender: FDA-Public Use
  Company Number: 2006095678

PATIENT
  Age: 73 Year
  Sex: Male

DRUGS (9)
  1. LIPITOR [Suspect]
     Indication: HYPERCHOLESTEROLAEMIA
     Dosage: 10 MG (DAILY), ORAL
     Route: 048
  2. SUNRYTHM (PILSICAINIDE HYDROCHLORIDE) [Concomitant]
  3. ASPIRIN [Concomitant]
  4. ALLOPURINOL [Concomitant]
  5. LOSARTAN POTASSIUM [Concomitant]
  6. NORVASC [Concomitant]
  7. CARDENALIN (DOXAZOSIN) [Concomitant]
  8. BISOPROLOL FUMARATE [Concomitant]
  9. LASIX [Concomitant]

REACTIONS (1)
  - NEPHROTIC SYNDROME [None]
